FAERS Safety Report 6302139-2 (Version None)
Quarter: 2009Q3

REPORT INFORMATION
  Report Type: 
  Country: None (occurrence: None)
  Receive Date: 20090807
  Receipt Date: 20090729
  Transmission Date: 20100115
  Serious: Yes (Other)
  Sender: FDA-Public Use
  Company Number: US-MERCK-0908USA00574

PATIENT
  Age: 77 Year
  Sex: Male

DRUGS (1)
  1. PRIMAXIN [Suspect]
     Indication: TRACHEOBRONCHITIS
     Route: 042

REACTIONS (1)
  - DRUG INEFFECTIVE [None]
